FAERS Safety Report 17307529 (Version 1)
Quarter: 2020Q1

REPORT INFORMATION
  Report Type: Spontaneous
  Country: US (occurrence: US)
  Receive Date: 20200106
  Receipt Date: 20200106
  Transmission Date: 20200409
  Serious: Yes (Hospitalization)
  Sender: FDA-Public Use
  Company Number: None

PATIENT
  Age: 60 Year
  Sex: Male
  Weight: 95 kg

DRUGS (1)
  1. INDOMETHACIN (INDOMETHACIN 50MG CAP) [Suspect]
     Active Substance: INDOMETHACIN
     Indication: PAIN
     Route: 048
     Dates: start: 20191002, end: 20191006

REACTIONS (2)
  - Acute kidney injury [None]
  - Hypertension [None]

NARRATIVE: CASE EVENT DATE: 20191006
